FAERS Safety Report 7095856-0 (Version None)
Quarter: 2010Q4

REPORT INFORMATION
  Report Type: 
  Country: None (occurrence: None)
  Receive Date: 20101111
  Receipt Date: 20090318
  Transmission Date: 20110411
  Serious: No
  Sender: FDA-Public Use
  Company Number: US-KINGPHARMUSA00001-K200900303

PATIENT
  Sex: Female
  Weight: 98.413 kg

DRUGS (3)
  1. LEVOXYL [Suspect]
     Indication: HYPOTHYROIDISM
     Dosage: 50 MCG, QD
     Route: 048
     Dates: start: 20090317
  2. DIOVAN                             /01319601/ [Concomitant]
     Indication: HYPERTENSION
     Dosage: 325 MG, QD
     Route: 048
  3. TOPROL-XL [Concomitant]
     Indication: HYPERTENSION
     Dosage: 50 MG, QD
     Route: 048

REACTIONS (3)
  - DYSPHAGIA [None]
  - ORAL DISCOMFORT [None]
  - RETCHING [None]
